FAERS Safety Report 7472146-5 (Version None)
Quarter: 2011Q2

REPORT INFORMATION
  Report Type: 
  Country: None (occurrence: None)
  Receive Date: 20110511
  Receipt Date: 20110126
  Transmission Date: 20111010
  Serious: No
  Sender: FDA-Public Use
  Company Number: A0909481A

PATIENT
  Age: 47 Year
  Sex: Female

DRUGS (4)
  1. ZOFRAN [Concomitant]
  2. PRILOSEC [Concomitant]
  3. BENADRYL [Concomitant]
  4. TYKERB [Suspect]
     Indication: BREAST CANCER
     Dosage: 5TAB PER DAY
     Route: 048
     Dates: start: 20110110, end: 20110117

REACTIONS (3)
  - RASH [None]
  - PRODUCT QUALITY ISSUE [None]
  - RASH PRURITIC [None]
